FAERS Safety Report 6053150-0 (Version None)
Quarter: 2009Q1

REPORT INFORMATION
  Report Type: 
  Country: None (occurrence: None)
  Receive Date: 20090123
  Receipt Date: 20090120
  Transmission Date: 20090719
  Serious: Yes (Hospitalization)
  Sender: FDA-Public Use
  Company Number: 2008SP020500

PATIENT
  Age: 73 Year
  Sex: Male
  Weight: 70 kg

DRUGS (9)
  1. TEMODAL [Suspect]
     Indication: GLIOBLASTOMA
     Dosage: 120 MG;QD;PO
     Route: 048
     Dates: start: 20080805, end: 20080924
  2. CANDESARTAN CILEXETIL [Suspect]
     Indication: HYPERTENSION
     Dosage: 9 MG;QAM;PO
     Route: 048
     Dates: end: 20080917
  3. KEPPRA [Concomitant]
  4. DEROXAT [Concomitant]
  5. KEPPRA [Concomitant]
  6. DEROXAT [Concomitant]
  7. ATARAX [Concomitant]
  8. LEMOXIL [Concomitant]
  9. ALLOPURINOL [Concomitant]

REACTIONS (4)
  - HYPERNATRAEMIA [None]
  - NEPHROGENIC DIABETES INSIPIDUS [None]
  - RENAL FAILURE [None]
  - URINARY INCONTINENCE [None]
